FAERS Safety Report 21845448 (Version 1)
Quarter: 2023Q1

REPORT INFORMATION
  Report Type: Spontaneous
  Country: US (occurrence: US)
  Receive Date: 20230111
  Receipt Date: 20230111
  Transmission Date: 20230417
  Serious: No
  Sender: FDA-Public Use
  Company Number: US-BRISTOL-MYERS SQUIBB COMPANY-2023-004357

PATIENT
  Age: 60 Year
  Sex: Male

DRUGS (1)
  1. ORENCIA [Suspect]
     Active Substance: ABATACEPT
     Indication: Product used for unknown indication
     Dosage: DOSE : UNAVAILABLE;     FREQ : INJECT 125MG (1 SYRINGE) SUBCUTANEOUSLY ONCE A WEEK.
     Route: 058

REACTIONS (1)
  - Infection [Unknown]
